FAERS Safety Report 7515371-7 (Version None)
Quarter: 2011Q2

REPORT INFORMATION
  Report Type: 
  Country: None (occurrence: None)
  Receive Date: 20110601
  Receipt Date: 20100624
  Transmission Date: 20111010
  Serious: No
  Sender: FDA-Public Use
  Company Number: US-PFIZER INC-2010079401

PATIENT
  Sex: Male
  Weight: 68 kg

DRUGS (4)
  1. CHANTIX [Suspect]
     Indication: SMOKING CESSATION THERAPY
     Dosage: 0.5 MG, DAILY
     Dates: start: 20100621
  2. MAGNESIUM CITRATE [Concomitant]
     Dosage: NIGHTLY EXCEPT WEDNESDAYS AND SATURDAYS
  3. MILK OF MAGNESIA TAB [Concomitant]
     Dosage: ON WEDNESDAYS AND SATURDAYS
  4. DOCUSATE [Concomitant]
     Dosage: ONCE DAILY WITH DINNER

REACTIONS (1)
  - CONSTIPATION [None]
